FAERS Safety Report 17823360 (Version 1)
Quarter: 2020Q2

REPORT INFORMATION
  Report Type: Report from Study
  Country: AU (occurrence: AU)
  Receive Date: 20200526
  Receipt Date: 20200526
  Transmission Date: 20200714
  Serious: No
  Sender: FDA-Public Use
  Company Number: AU-TOLMAR, INC.-20AU021341

PATIENT
  Sex: Male

DRUGS (2)
  1. ELIGARD [Suspect]
     Active Substance: LEUPROLIDE ACETATE
     Indication: PROSTATE CANCER
     Dosage: 45 MG, Q 6 MONTH
     Route: 058
  2. OXYCODONE [Concomitant]
     Active Substance: OXYCODONE
     Indication: MUSCULOSKELETAL CHEST PAIN
     Dosage: UNK
     Route: 065

REACTIONS (3)
  - Fall [Unknown]
  - Arthralgia [Not Recovered/Not Resolved]
  - Musculoskeletal chest pain [Recovered/Resolved]

NARRATIVE: CASE EVENT DATE: 2019
